FAERS Safety Report 8503296-X (Version None)
Quarter: 2012Q3

REPORT INFORMATION
  Report Type: 
  Country: None (occurrence: None)
  Receive Date: 20120711
  Receipt Date: 20120705
  Transmission Date: 20120928
  Serious: No
  Sender: FDA-Public Use
  Company Number: US-PFIZER INC-2010US-36392

PATIENT
  Sex: Male
  Weight: 72.57 kg

DRUGS (3)
  1. CALAN [Suspect]
     Indication: HYPERTENSION
     Dosage: 240 MG, 1X/DAY
     Route: 048
  2. CARDURA [Suspect]
     Dosage: 2 MG, UNK
     Route: 048
  3. CARDURA [Suspect]
     Indication: HYPERTENSION
     Dosage: 1 MG, UNK
     Route: 048

REACTIONS (3)
  - GASTROOESOPHAGEAL REFLUX DISEASE [None]
  - OESOPHAGEAL DISORDER [None]
  - ERUCTATION [None]
